FAERS Safety Report 9826886 (Version 1)
Quarter: 2014Q1

REPORT INFORMATION
  Report Type: Spontaneous
  Country: US (occurrence: US)
  Receive Date: 20140117
  Receipt Date: 20140117
  Transmission Date: 20141002
  Serious: No
  Sender: FDA-Public Use
  Company Number: US-GLAXOSMITHKLINE-A1011337A

PATIENT
  Age: 62 Year
  Sex: Male
  Weight: 102.3 kg

DRUGS (1)
  1. PROMACTA [Suspect]
     Indication: THROMBOCYTOPENIA
     Dosage: 50MG PER DAY
     Route: 048
     Dates: start: 20121031, end: 20130121

REACTIONS (2)
  - Platelet count decreased [Unknown]
  - Drug ineffective [Unknown]
